FAERS Safety Report 7427239-5 (Version None)
Quarter: 2011Q2

REPORT INFORMATION
  Report Type: 
  Country: None (occurrence: None)
  Receive Date: 20110420
  Receipt Date: 20110414
  Transmission Date: 20111010
  Serious: No
  Sender: FDA-Public Use
  Company Number: US-PFIZER INC-2011082920

PATIENT
  Sex: Female

DRUGS (2)
  1. METFORMIN [Concomitant]
     Indication: DIABETES MELLITUS
     Dosage: UNK
  2. PREMARIN [Suspect]
     Indication: VULVOVAGINAL DRYNESS
     Dosage: UNK
     Route: 067
     Dates: start: 20090101

REACTIONS (2)
  - WRONG TECHNIQUE IN DRUG USAGE PROCESS [None]
  - VULVOVAGINAL MYCOTIC INFECTION [None]
